FAERS Safety Report 9716462 (Version 5)
Quarter: 2015Q1

REPORT INFORMATION
  Report Type: Report from Study
  Country: US (occurrence: US)
  Receive Date: 20131127
  Receipt Date: 20150219
  Transmission Date: 20150721
  Serious: Yes (Hospitalization, Other)
  Sender: FDA-Public Use
  Company Number: US-ALEXION PHARMACEUTICALS INC.-A201303308

PATIENT

DRUGS (1)
  1. SOLIRIS [Suspect]
     Active Substance: ECULIZUMAB
     Indication: HAEMOLYTIC URAEMIC SYNDROME
     Dosage: UNK
     Route: 042

REACTIONS (11)
  - Gastrointestinal haemorrhage [Unknown]
  - Splenic haemorrhage [Unknown]
  - Weight decreased [Unknown]
  - Decreased appetite [Unknown]
  - Intra-abdominal haemorrhage [Recovered/Resolved]
  - Pseudocyst [Unknown]
  - White blood cell count increased [Unknown]
  - Vomiting [Unknown]
  - Chest pain [Unknown]
  - Hypertension [Not Recovered/Not Resolved]
  - Pancreatic cyst [Unknown]

NARRATIVE: CASE EVENT DATE: 20131105
